FAERS Safety Report 6843545-7 (Version None)
Quarter: 2010Q3

REPORT INFORMATION
  Report Type: 
  Country: None (occurrence: None)
  Receive Date: 20100712
  Receipt Date: 20100627
  Transmission Date: 20110219
  Serious: Yes (Disabling)
  Sender: FDA-Public Use
  Company Number: GB-DEXPHARM-20100831

PATIENT
  Age: 50 Year
  Sex: Female

DRUGS (2)
  1. OMEPRAZOLE [Suspect]
     Indication: NAUSEA
     Dosage: ORAL
     Route: 048
     Dates: start: 20100420, end: 20100510
  2. LANSOPRAZOLE [Suspect]
     Indication: NAUSEA
     Dates: start: 20100320, end: 20100417

REACTIONS (1)
  - PHOTOSENSITIVITY REACTION [None]
